FAERS Safety Report 25137760 (Version 2)
Quarter: 2025Q2

REPORT INFORMATION
  Report Type: Report from Study
  Country: FI (occurrence: FI)
  Receive Date: 20250329
  Receipt Date: 20250401
  Transmission Date: 20250717
  Serious: Yes (Disabling)
  Sender: ABBVIE
  Company Number: FI-ABBVIE-6182206

PATIENT
  Age: 70 Year
  Sex: Male

DRUGS (3)
  1. FOSCARBIDOPA\FOSLEVODOPA [Suspect]
     Active Substance: FOSCARBIDOPA\FOSLEVODOPA
     Indication: Parkinson^s disease
     Route: 058
     Dates: start: 20250306
  2. FOSCARBIDOPA\FOSLEVODOPA [Suspect]
     Active Substance: FOSCARBIDOPA\FOSLEVODOPA
     Route: 058
     Dates: start: 202503
  3. BENSERAZIDE HYDROCHLORIDE\LEVODOPA [Concomitant]
     Active Substance: BENSERAZIDE HYDROCHLORIDE\LEVODOPA
     Indication: Product used for unknown indication

REACTIONS (27)
  - Gait inability [Recovered/Resolved]
  - Bruxism [Unknown]
  - Device dislocation [Recovered/Resolved]
  - Catheter site haemorrhage [Recovered/Resolved]
  - Parkinson^s disease [Unknown]
  - Wheelchair user [Recovered/Resolved]
  - Hand deformity [Recovered/Resolved]
  - Gastric dilatation [Unknown]
  - Fall [Recovered/Resolved]
  - Musculoskeletal stiffness [Unknown]
  - Angina pectoris [Unknown]
  - Musculoskeletal stiffness [Unknown]
  - On and off phenomenon [Unknown]
  - Abdominal distension [Recovered/Resolved]
  - Feeling abnormal [Unknown]
  - Peripheral swelling [Unknown]
  - Dizziness [Unknown]
  - Mobility decreased [Recovered/Resolved]
  - Device physical property issue [Recovered/Resolved]
  - Fall [Unknown]
  - Peripheral swelling [Recovered/Resolved]
  - Hyperhidrosis [Not Recovered/Not Resolved]
  - Joint swelling [Recovered/Resolved]
  - Tooth loss [Unknown]
  - Fall [Unknown]
  - Device physical property issue [Unknown]
  - Syringe issue [Recovered/Resolved]

NARRATIVE: CASE EVENT DATE: 20250301
